FAERS Safety Report 6796182-7 (Version None)
Quarter: 2010Q2

REPORT INFORMATION
  Report Type: 
  Country: None (occurrence: None)
  Receive Date: 20100625
  Receipt Date: 20100621
  Transmission Date: 20101027
  Serious: Yes (Death)
  Sender: FDA-Public Use
  Company Number: US-ELI_LILLY_AND_COMPANY-US201006006053

PATIENT
  Sex: Female

DRUGS (4)
  1. ALIMTA [Suspect]
     Indication: LUNG NEOPLASM MALIGNANT
  2. TAXOL [Concomitant]
     Indication: LUNG NEOPLASM MALIGNANT
  3. CARBOPLATIN [Concomitant]
     Indication: LUNG NEOPLASM MALIGNANT
  4. AVASTIN [Concomitant]
     Indication: LUNG NEOPLASM MALIGNANT

REACTIONS (1)
  - DEATH [None]
